FAERS Safety Report 9891625 (Version 1)
Quarter: 2014Q1

REPORT INFORMATION
  Report Type: Spontaneous
  Country: US (occurrence: None)
  Receive Date: 20140211
  Receipt Date: 20140211
  Transmission Date: 20141002
  Serious: Yes (Other)
  Sender: FDA-Public Use
  Company Number: None

PATIENT
  Age: 20 Year
  Sex: Female
  Weight: 58.97 kg

DRUGS (3)
  1. NECON 1/35 [Suspect]
     Dosage: 1 PILL DAILY  QD ORAL
     Route: 048
     Dates: start: 20070701, end: 20110801
  2. NECON 1/35 [Suspect]
     Dosage: 1 PILL DAILY  QD ORAL
     Route: 048
     Dates: start: 20070701, end: 20110801
  3. NECON 1/35 [Suspect]
     Dosage: 1 PILL DAILY  QD ORAL
     Route: 048
     Dates: start: 20070701, end: 20110801

REACTIONS (7)
  - Hypoaesthesia [None]
  - Blindness [None]
  - Migraine [None]
  - Hypoaesthesia [None]
  - Hypoaesthesia [None]
  - Impaired work ability [None]
  - Educational problem [None]
